FAERS Safety Report 7722673-8 (Version None)
Quarter: 2011Q3

REPORT INFORMATION
  Report Type: 
  Country: None (occurrence: None)
  Receive Date: 20110831
  Receipt Date: 20110822
  Transmission Date: 20111222
  Serious: Yes (Hospitalization)
  Sender: FDA-Public Use
  Company Number: US-ASTRAZENECA-2011SE50542

PATIENT
  Age: 38 Year
  Sex: Male

DRUGS (5)
  1. ABILIFY [Concomitant]
  2. SEROQUEL XR [Suspect]
     Dosage: 150 MG, TWO TABLETS AT BEDTIME
     Route: 048
  3. LAMICTAL [Concomitant]
  4. PROVIGIL [Concomitant]
  5. ATARAX [Concomitant]

REACTIONS (3)
  - EMOTIONAL DISORDER [None]
  - MENTAL IMPAIRMENT [None]
  - DRUG DOSE OMISSION [None]
